FAERS Safety Report 12299065 (Version 1)
Quarter: 2016Q2

REPORT INFORMATION
  Report Type: Spontaneous
  Country: US (occurrence: US)
  Receive Date: 20160425
  Receipt Date: 20160425
  Transmission Date: 20160815
  Serious: No
  Sender: FDA-Public Use
  Company Number: US-TAKEDA-2016TJP007899

PATIENT
  Age: 69 Year
  Sex: Female

DRUGS (5)
  1. TRULICITY [Concomitant]
     Active Substance: DULAGLUTIDE
     Dosage: UNK
  2. METOPROLOL. [Concomitant]
     Active Substance: METOPROLOL
     Dosage: UNK
  3. ACTOS [Suspect]
     Active Substance: PIOGLITAZONE HYDROCHLORIDE
     Indication: PRODUCT USED FOR UNKNOWN INDICATION
     Dosage: UNK
     Route: 065
     Dates: start: 20160404
  4. WARFARIN [Concomitant]
     Active Substance: WARFARIN
     Dosage: UNK
  5. TRULICITY [Suspect]
     Active Substance: DULAGLUTIDE
     Indication: TYPE 2 DIABETES MELLITUS
     Dosage: 0.75 MG, 1/WEEK
     Route: 058
     Dates: start: 20160404

REACTIONS (6)
  - Vomiting [Recovered/Resolved]
  - Asthenia [Unknown]
  - Nausea [Recovered/Resolved]
  - Dysgeusia [Unknown]
  - Flatulence [Recovered/Resolved]
  - Abdominal pain [Unknown]

NARRATIVE: CASE EVENT DATE: 20160405
